FAERS Safety Report 8185305-3 (Version None)
Quarter: 2012Q1

REPORT INFORMATION
  Report Type: 
  Country: None (occurrence: None)
  Receive Date: 20120305
  Receipt Date: 20120227
  Transmission Date: 20120608
  Serious: Yes (Hospitalization)
  Sender: FDA-Public Use
  Company Number: PHHY2012MX017613

PATIENT
  Sex: Male

DRUGS (2)
  1. TRILEPTAL [Suspect]
     Indication: CONVULSION
     Dosage: 9 ML, DAILY
     Dates: start: 20110101
  2. TRILEPTAL [Suspect]
     Dosage: 10.5 ML, DAILY
     Dates: start: 20120211

REACTIONS (8)
  - INFLUENZA [None]
  - NUCLEAR MAGNETIC RESONANCE IMAGING ABNORMAL [None]
  - DRUG LEVEL DECREASED [None]
  - IRRITABILITY [None]
  - CONVULSION [None]
  - ELECTROENCEPHALOGRAM ABNORMAL [None]
  - SOMNOLENCE [None]
  - CRYING [None]
